FAERS Safety Report 5485358-7 (Version None)
Quarter: 2007Q4

REPORT INFORMATION
  Report Type: 
  Country: None (occurrence: None)
  Receive Date: 20071015
  Receipt Date: 20071003
  Transmission Date: 20080405
  Serious: Yes (Hospitalization)
  Sender: FDA-Public Use
  Company Number: US-BRISTOL-MYERS SQUIBB COMPANY-13883947

PATIENT
  Age: 54 Year
  Sex: Male

DRUGS (11)
  1. BLINDED: ABATACEPT [Suspect]
     Indication: CROHN'S DISEASE
     Route: 042
     Dates: start: 20070720, end: 20070817
  2. BLINDED: PLACEBO [Suspect]
     Indication: CROHN'S DISEASE
     Route: 042
     Dates: start: 20070720, end: 20070817
  3. VERAPMIL [Concomitant]
     Dates: start: 20070706
  4. ASPIRIN [Concomitant]
     Dates: start: 20040401
  5. LIPITOR [Concomitant]
     Dates: start: 20060118
  6. PLAVIX [Concomitant]
     Dates: start: 20060118
  7. TOPROL-XL [Concomitant]
     Dates: start: 20060118
  8. PREVACID [Concomitant]
     Dates: start: 20050101
  9. COLACE [Concomitant]
     Dates: start: 20050101
  10. SULAR [Concomitant]
     Dates: start: 20060401
  11. VICODIN [Concomitant]
     Dates: start: 20030101

REACTIONS (1)
  - DEEP VEIN THROMBOSIS [None]
